FAERS Safety Report 25235174 (Version 1)
Quarter: 2025Q2

REPORT INFORMATION
  Report Type: Spontaneous
  Country: US (occurrence: None)
  Receive Date: 20250424
  Receipt Date: 20250424
  Transmission Date: 20250717
  Serious: Yes (unspecified)
  Sender: FDA-CTU
  Company Number: None

PATIENT
  Age: 53 Year
  Sex: Female

DRUGS (1)
  1. PEGASYS [Suspect]
     Active Substance: PEGINTERFERON ALFA-2A
     Dosage: OTHER STRENGTH : 180MCG/ML;?FREQUENCY : WEEKLY;?

REACTIONS (8)
  - Dyspepsia [None]
  - Weight decreased [None]
  - Dysphagia [None]
  - Nausea [None]
  - Dairy intolerance [None]
  - Abdominal distension [None]
  - Abdominal distension [None]
  - Chemical burn of oral cavity [None]
